FAERS Safety Report 6179607-X (Version None)
Quarter: 2009Q2

REPORT INFORMATION
  Report Type: 
  Country: None (occurrence: None)
  Receive Date: 20090501
  Receipt Date: 20090501
  Transmission Date: 20091009
  Serious: Yes (Other)
  Sender: FDA-Public Use
  Company Number: None

PATIENT
  Age: 48 Year
  Sex: Female
  Weight: 65.7716 kg

DRUGS (1)
  1. VERAMYST [Suspect]
     Indication: SINUSITIS
     Dosage: 1 SPRAY EACH NOSTRIL TWICE A DAY NASAL
     Route: 045
     Dates: start: 20090102, end: 20090331

REACTIONS (6)
  - ATROPHIC VULVOVAGINITIS [None]
  - DERMATITIS [None]
  - DRUG TOXICITY [None]
  - KERATOCONJUNCTIVITIS SICCA [None]
  - PRURITUS [None]
  - ROSACEA [None]
